FAERS Safety Report 24785765 (Version 2)
Quarter: 2025Q1

REPORT INFORMATION
  Report Type: Spontaneous
  Country: US (occurrence: US)
  Receive Date: 20241229
  Receipt Date: 20250114
  Transmission Date: 20250409
  Serious: No
  Sender: ROCHE
  Company Number: ROCHE-10000164630

PATIENT
  Age: 25 Year
  Sex: Male

DRUGS (1)
  1. OCREVUS [Suspect]
     Active Substance: OCRELIZUMAB
     Indication: Multiple sclerosis
     Route: 065

REACTIONS (2)
  - Impaired driving ability [Unknown]
  - Drug ineffective [Unknown]
